FAERS Safety Report 6216489-1 (Version None)
Quarter: 2009Q2

REPORT INFORMATION
  Report Type: 
  Country: None (occurrence: None)
  Receive Date: 20090605
  Receipt Date: 20090601
  Transmission Date: 20091009
  Serious: Yes (Other)
  Sender: FDA-Public Use
  Company Number: US-MERCK-0904USA00381

PATIENT
  Age: 61 Year
  Sex: Female
  Weight: 58 kg

DRUGS (5)
  1. FOSAMAX [Suspect]
     Indication: OSTEOPOROSIS
     Route: 048
     Dates: start: 20071119, end: 20090301
  2. CITALOPRAM [Concomitant]
     Route: 065
  3. CELEXA [Concomitant]
     Indication: DEPRESSION
     Route: 065
     Dates: start: 20090223
  4. LIPITOR [Concomitant]
     Indication: HYPERLIPIDAEMIA
     Route: 065
     Dates: start: 20080512, end: 20090301
  5. VICODIN [Concomitant]
     Route: 065

REACTIONS (12)
  - ABNORMAL FAECES [None]
  - COUGH [None]
  - DIARRHOEA [None]
  - EYE SWELLING [None]
  - GASTROOESOPHAGEAL REFLUX DISEASE [None]
  - HEADACHE [None]
  - HYPERSENSITIVITY [None]
  - LIP OEDEMA [None]
  - NASOPHARYNGITIS [None]
  - PRURITUS GENERALISED [None]
  - SWELLING FACE [None]
  - URTICARIA [None]
